FAERS Safety Report 10925012 (Version 1)
Quarter: 2015Q1

REPORT INFORMATION
  Report Type: Spontaneous
  Country: ES (occurrence: ES)
  Receive Date: 20150318
  Receipt Date: 20150318
  Transmission Date: 20150721
  Serious: Yes (Hospitalization)
  Sender: FDA-Public Use
  Company Number: ES-MYLANLABS-2015M1008528

PATIENT

DRUGS (3)
  1. VINORELBINE [Suspect]
     Active Substance: VINORELBINE\VINORELBINE TARTRATE
     Indication: LUNG ADENOCARCINOMA METASTATIC
     Dosage: 2 CYCLES OF 25 MG/M2 ON DAY 1 AND 8 EVERY 21 DAYS
     Route: 065
  2. ERLOTINIB [Suspect]
     Active Substance: ERLOTINIB
     Indication: LUNG ADENOCARCINOMA METASTATIC
     Route: 065
     Dates: start: 200806
  3. CISPLATIN. [Suspect]
     Active Substance: CISPLATIN
     Indication: LUNG ADENOCARCINOMA METASTATIC
     Dosage: 2 CYCLES OF 75 MG/M2 ON DAY 1 EVERY 21 DAYS
     Route: 065

REACTIONS (7)
  - Interstitial lung disease [Recovered/Resolved]
  - Lung adenocarcinoma metastatic [None]
  - Asthenia [Unknown]
  - Malignant neoplasm progression [None]
  - Metastases to meninges [None]
  - Acute respiratory failure [None]
  - Renal impairment [Unknown]
